FAERS Safety Report 25323627 (Version 3)
Quarter: 2025Q2

REPORT INFORMATION
  Report Type: Report from Study
  Country: JP (occurrence: JP)
  Receive Date: 20250516
  Receipt Date: 20250613
  Transmission Date: 20250716
  Serious: Yes (Hospitalization)
  Sender: EISAI
  Company Number: JP-Eisai-EC-2025-189260

PATIENT
  Age: 43 Year
  Sex: Female

DRUGS (9)
  1. LENVATINIB [Suspect]
     Active Substance: LENVATINIB
     Indication: Angiosarcoma
     Dates: start: 20250425, end: 20250506
  2. LENVATINIB [Suspect]
     Active Substance: LENVATINIB
     Dates: start: 20250516, end: 20250517
  3. LENVATINIB [Suspect]
     Active Substance: LENVATINIB
     Dates: start: 20250520, end: 20250520
  4. PEMBROLIZUMAB [Suspect]
     Active Substance: PEMBROLIZUMAB
     Indication: Angiosarcoma
     Dates: start: 20250425
  5. CALCIUM CARBONATE [Concomitant]
     Active Substance: CALCIUM CARBONATE
     Dosage: DOSE: 1T
  6. 1,4-DIMETHYL-7-ISOPROPYLAZULENE [Concomitant]
  7. DEXAMETHASONE [Concomitant]
     Active Substance: DEXAMETHASONE
  8. DENOSUMAB [Concomitant]
     Active Substance: DENOSUMAB
  9. DEXCHLORPHENIRAMINE MALEATE [Concomitant]
     Active Substance: DEXCHLORPHENIRAMINE MALEATE
     Dates: start: 20250425

REACTIONS (1)
  - Pyrexia [Recovered/Resolved]

NARRATIVE: CASE EVENT DATE: 20250502
